FAERS Safety Report 10570631 (Version 1)
Quarter: 2014Q4

REPORT INFORMATION
  Report Type: Spontaneous
  Country: IT (occurrence: FR)
  Receive Date: 20141107
  Receipt Date: 20141107
  Transmission Date: 20150529
  Serious: Yes (Hospitalization)
  Sender: FDA-Public Use
  Company Number: FR-FRI-1000072070

PATIENT
  Age: 80 Year
  Sex: Female

DRUGS (11)
  1. PAROXETINE [Concomitant]
     Active Substance: PAROXETINE\PAROXETINE HYDROCHLORIDE
     Dosage: 20 MG
     Route: 048
  2. DIGOXIN. [Suspect]
     Active Substance: DIGOXIN
     Route: 048
     Dates: end: 201405
  3. PREVISCAN [Concomitant]
     Active Substance: FLUINDIONE
     Route: 048
  4. TERCIAN [Concomitant]
     Active Substance: CYAMEMAZINE
     Dosage: 25 MG
     Route: 048
  5. FUROSEMIDE. [Suspect]
     Active Substance: FUROSEMIDE
     Dosage: 40 MG
     Route: 048
     Dates: end: 201405
  6. TERALITHE [Concomitant]
     Active Substance: LITHIUM CARBONATE
     Dosage: 750 MG
     Route: 048
  7. METFORMIN [Concomitant]
     Active Substance: METFORMIN HYDROCHLORIDE
     Route: 048
  8. NEBIVOLOL [Suspect]
     Active Substance: NEBIVOLOL
     Dosage: 5 MG
     Route: 048
     Dates: end: 201405
  9. DEDROGYL [Concomitant]
     Active Substance: CALCIFEDIOL
     Route: 048
  10. BROMAZEPAM [Concomitant]
     Active Substance: BROMAZEPAM
     Route: 048
  11. LANTUS [Concomitant]
     Active Substance: INSULIN GLARGINE
     Route: 058

REACTIONS (2)
  - Accidental overdose [Recovered/Resolved]
  - Atrial fibrillation [Recovered/Resolved]

NARRATIVE: CASE EVENT DATE: 20140520
